FAERS Safety Report 6491180-5 (Version None)
Quarter: 2009Q4

REPORT INFORMATION
  Report Type: 
  Country: None (occurrence: None)
  Receive Date: 20091125
  Receipt Date: 20090526
  Transmission Date: 20100525
  Serious: Yes (Other)
  Sender: FDA-Public Use
  Company Number: 2009BH009303

PATIENT
  Age: 52 Year
  Sex: Female
  Weight: 56.5 kg

DRUGS (15)
  1. DIANEAL [Suspect]
     Indication: PERITONEAL DIALYSIS
     Dosage: 12 L; EVERY DAY; IP
     Route: 033
     Dates: start: 20030601
  2. EPOGEN [Concomitant]
  3. ERYTHROMYCIN [Concomitant]
  4. CENTAMICIN [Concomitant]
  5. ATORVASTATIN [Concomitant]
  6. PAXIL [Concomitant]
  7. PHENERGAN HCL [Concomitant]
  8. POTASSIUM SALTS [Concomitant]
  9. PANTOPRAZOLE [Concomitant]
  10. RENAGEL [Concomitant]
  11. RENAL CAPS [Concomitant]
  12. RESTORIL [Concomitant]
  13. PENTOXIFYLLINE [Concomitant]
  14. VICODIN [Concomitant]
  15. XANAX [Concomitant]

REACTIONS (1)
  - PERITONITIS BACTERIAL [None]
